FAERS Safety Report 8226340-6 (Version None)
Quarter: 2012Q1

REPORT INFORMATION
  Report Type: 
  Country: None (occurrence: None)
  Receive Date: 20120321
  Receipt Date: 20120314
  Transmission Date: 20120608
  Serious: Yes (Other)
  Sender: FDA-Public Use
  Company Number: JP-VERTEX PHARMACEUTICALS INC.-AE-2012-003756

PATIENT
  Age: 25 Year
  Sex: Male

DRUGS (11)
  1. TELAVIC (TELAPREVIR) [Suspect]
     Indication: HEPATITIS C
     Dates: start: 20111213, end: 20120304
  2. REBETOL [Concomitant]
     Dates: start: 20120306
  3. SELBEX [Concomitant]
     Route: 048
     Dates: start: 20111213
  4. REBETOL [Concomitant]
     Dates: start: 20111227, end: 20120207
  5. REBETOL [Concomitant]
     Dates: start: 20120207, end: 20120221
  6. LOCHOLEST [Concomitant]
     Route: 048
     Dates: start: 20111213
  7. REBETOL [Concomitant]
     Dates: start: 20120228, end: 20120306
  8. XYZAL [Concomitant]
     Route: 048
     Dates: start: 20111213
  9. REBETOL [Concomitant]
     Dates: start: 20120221, end: 20120228
  10. REBETOL [Concomitant]
     Indication: HEPATITIS C
     Route: 048
     Dates: start: 20111213, end: 20111227
  11. PEGINTERFERON ALFA-2A [Concomitant]
     Indication: HEPATITIS C
     Dates: start: 20111213

REACTIONS (1)
  - WHITE BLOOD CELL COUNT DECREASED [None]
